FAERS Safety Report 5708742-2 (Version None)
Quarter: 2008Q2

REPORT INFORMATION
  Report Type: 
  Country: None (occurrence: None)
  Receive Date: 20080408
  Receipt Date: 20020408
  Transmission Date: 20081010
  Serious: Yes (Hospitalization)
  Sender: FDA-Public Use
  Company Number: WSDF_00268

PATIENT
  Age: 66 Year
  Sex: Male
  Weight: 83.9154 kg

DRUGS (6)
  1. WINRHO SDF [Suspect]
     Indication: AUTOIMMUNE THROMBOCYTOPENIA
     Dosage: 25 MCG/KG ONCE; IV
     Route: 042
     Dates: start: 20020403, end: 20020403
  2. WINRHO SDF [Suspect]
     Indication: AUTOIMMUNE THROMBOCYTOPENIA
     Dates: start: 20020403, end: 20020403
  3. LASIX [Concomitant]
  4. PLACQUERIL [Concomitant]
  5. ZYLOPRIM [Concomitant]
  6. LISINOPRIL [Concomitant]

REACTIONS (4)
  - CHILLS [None]
  - COAGULOPATHY [None]
  - INTRAVASCULAR HAEMOLYSIS [None]
  - PYREXIA [None]
